FAERS Safety Report 23845993 (Version 1)
Quarter: 2024Q2

REPORT INFORMATION
  Report Type: Spontaneous
  Country: US (occurrence: US)
  Receive Date: 20240512
  Receipt Date: 20240512
  Transmission Date: 20240716
  Serious: Yes (Other)
  Sender: FDA-Public Use
  Company Number: US-SA-SAC20240508001539

PATIENT
  Age: 69 Year
  Sex: Male
  Weight: 57.6 kg

DRUGS (1)
  1. DUPIXENT [Suspect]
     Active Substance: DUPILUMAB
     Indication: Eosinophilic oesophagitis
     Dosage: 300 MG, QW
     Route: 058
     Dates: start: 20240417

REACTIONS (4)
  - Choking [Unknown]
  - Dysphagia [Unknown]
  - Odynophagia [Unknown]
  - Regurgitation [Unknown]

NARRATIVE: CASE EVENT DATE: 20240101
